FAERS Safety Report 16570015 (Version 3)
Quarter: 2020Q1

REPORT INFORMATION
  Report Type: Spontaneous
  Country: IT (occurrence: IT)
  Receive Date: 20190715
  Receipt Date: 20200109
  Transmission Date: 20200409
  Serious: Yes (Other)
  Sender: FDA-Public Use
  Company Number: PHHY2019IT158358

PATIENT
  Sex: Male

DRUGS (1)
  1. LEVOFLOXACIN. [Suspect]
     Active Substance: LEVOFLOXACIN
     Indication: OSTEOMYELITIS
     Dosage: 500 MG, QD
     Route: 048

REACTIONS (9)
  - Neuropathic muscular atrophy [Unknown]
  - Pain [Unknown]
  - Tachyarrhythmia [Unknown]
  - Myalgia [Unknown]
  - Neuritis [Unknown]
  - Muscle atrophy [Unknown]
  - Tendon disorder [Unknown]
  - Tendon rupture [Not Recovered/Not Resolved]
  - Myopathy [Unknown]

NARRATIVE: CASE EVENT DATE: 201904
